FAERS Safety Report 7481341-0 (Version None)
Quarter: 2011Q2

REPORT INFORMATION
  Report Type: 
  Country: None (occurrence: None)
  Receive Date: 20110516
  Receipt Date: 20110510
  Transmission Date: 20111010
  Serious: Yes (Hospitalization, Other)
  Sender: FDA-Public Use
  Company Number: PHHY2010BR75692

PATIENT
  Sex: Male

DRUGS (3)
  1. TRILEPTAL [Concomitant]
     Dosage: 600 MG, UNK
  2. DIOVAN HCT [Suspect]
     Dosage: 320 MG VALSARTAN /25MG  HYDROCHLOROTHIAZIDE
  3. LEXAPRO [Suspect]
     Dosage: 10 MG, UNK

REACTIONS (3)
  - DEPRESSION [None]
  - CEREBROVASCULAR ACCIDENT [None]
  - SHOCK [None]
